FAERS Safety Report 20054500 (Version 1)
Quarter: 2021Q4

REPORT INFORMATION
  Report Type: Spontaneous
  Country: BE (occurrence: BE)
  Receive Date: 20211110
  Receipt Date: 20211110
  Transmission Date: 20220303
  Serious: Yes (Other)
  Sender: FDA-Public Use
  Company Number: BE-NOVARTISPH-NVSC2021BE255714

PATIENT

DRUGS (1)
  1. LINEZOLID [Suspect]
     Active Substance: LINEZOLID
     Indication: Anti-infective therapy
     Dosage: 600 MG, BID
     Route: 065

REACTIONS (1)
  - Inappropriate antidiuretic hormone secretion [Unknown]
